FAERS Safety Report 7271614-9 (Version None)
Quarter: 2011Q1

REPORT INFORMATION
  Report Type: 
  Country: None (occurrence: None)
  Receive Date: 20110203
  Receipt Date: 20110125
  Transmission Date: 20110831
  Serious: Yes (Other)
  Sender: FDA-Public Use
  Company Number: JP-JNJFOC-20110107242

PATIENT
  Age: 71 Year
  Sex: Male

DRUGS (7)
  1. CLARITIN [Concomitant]
     Route: 048
  2. PANALDINE [Concomitant]
     Route: 048
  3. MEXITIL [Concomitant]
     Route: 048
  4. CARDENALIN [Concomitant]
     Route: 065
  5. ASPIRIN [Concomitant]
     Route: 048
  6. WARFARIN POTASSIUM [Concomitant]
     Route: 048
  7. ITRIZOLE [Suspect]
     Indication: ONYCHOMYCOSIS
     Route: 048

REACTIONS (5)
  - GENERALISED OEDEMA [None]
  - LIVER FUNCTION TEST ABNORMAL [None]
  - ALANINE AMINOTRANSFERASE INCREASED [None]
  - PLEURAL EFFUSION [None]
  - ASPARTATE AMINOTRANSFERASE INCREASED [None]
